FAERS Safety Report 16272316 (Version 1)
Quarter: 2019Q2

REPORT INFORMATION
  Report Type: Spontaneous
  Country: DE (occurrence: DE)
  Receive Date: 20190503
  Receipt Date: 20190503
  Transmission Date: 20190711
  Serious: Yes (Life-Threatening, Hospitalization, Other)
  Sender: FDA-Public Use
  Company Number: DE-ASTRAZENECA-2019SE65639

PATIENT
  Age: 68 Year
  Sex: Male

DRUGS (4)
  1. VALSARTAN. [Concomitant]
     Active Substance: VALSARTAN
  2. GLIMEPIRIDE. [Concomitant]
     Active Substance: GLIMEPIRIDE
  3. METOPROLOL. [Concomitant]
     Active Substance: METOPROLOL
  4. TICAGRELOR. [Suspect]
     Active Substance: TICAGRELOR
     Indication: INFARCTION
     Route: 048

REACTIONS (3)
  - Atrial fibrillation [Unknown]
  - Atrioventricular block second degree [Unknown]
  - Infarction [Unknown]
